FAERS Safety Report 11146535 (Version 1)
Quarter: 2015Q2

REPORT INFORMATION
  Report Type: Spontaneous
  Country: US (occurrence: US)
  Receive Date: 20150528
  Receipt Date: 20150528
  Transmission Date: 20150821
  Serious: No
  Sender: FDA-Public Use
  Company Number: US-ELI_LILLY_AND_COMPANY-US201505006864

PATIENT
  Sex: Female

DRUGS (2)
  1. HUMALOG [Suspect]
     Active Substance: INSULIN LISPRO
     Indication: TYPE 2 DIABETES MELLITUS
     Dosage: 2 U, TID
     Route: 065
     Dates: start: 201503
  2. LANTUS [Concomitant]
     Active Substance: INSULIN GLARGINE
     Dosage: 5 U, UNKNOWN

REACTIONS (2)
  - Blood glucose [Unknown]
  - Glycosylated haemoglobin increased [Unknown]
